FAERS Safety Report 9265159 (Version 1)
Quarter: 2013Q2

REPORT INFORMATION
  Report Type: Spontaneous
  Country: CZ (occurrence: None)
  Receive Date: 20130429
  Receipt Date: 20130429
  Transmission Date: 20140414
  Serious: Yes (Hospitalization)
  Sender: FDA-Public Use
  Company Number: SYM-2013-03173

PATIENT
  Sex: 0

DRUGS (5)
  1. FLUOROURACIL (FLUOROURACIL) (FLUOROURACIL) [Suspect]
     Indication: COLORECTAL CANCER METASTATIC
  2. FLUOROURACIL (FLUOROURACIL) (FLUOROURACIL) [Suspect]
  3. FLUOROURACIL (FLUOROURACIL) (FLUOROURACIL) [Suspect]
  4. OXALIPLATIN (OXALIPLATIN) (OXALIPLATIN) [Suspect]
     Indication: COLORECTAL CANCER METASTATIC
     Route: 013
  5. LEUCOVORIN (FOLINIC ACID) (FOLINIC ACID) [Suspect]
     Indication: COLORECTAL CANCER METASTATIC
     Route: 013

REACTIONS (3)
  - Haemorrhage [None]
  - Thrombocytopenia [None]
  - Toxicity to various agents [None]
